FAERS Safety Report 7316512-7 (Version None)
Quarter: 2011Q1

REPORT INFORMATION
  Report Type: 
  Country: None (occurrence: None)
  Receive Date: 20110226
  Receipt Date: 20100702
  Transmission Date: 20110831
  Serious: No
  Sender: FDA-Public Use
  Company Number: US-ALLERGAN-1008671US

PATIENT
  Age: 74 Year
  Sex: Female

DRUGS (4)
  1. BOTOXA? [Suspect]
     Indication: TREMOR
  2. BOTOXA? [Suspect]
     Indication: TORTICOLLIS
     Dosage: 200 UNITS, SINGLE
     Route: 030
     Dates: start: 20100625, end: 20100625
  3. ZOCOR [Concomitant]
     Indication: PRODUCT USED FOR UNKNOWN INDICATION
     Dosage: 20 MG, QHS
  4. PRIMIDONE [Concomitant]
     Indication: TREMOR
     Dosage: 200 MG, UNK
     Route: 048

REACTIONS (5)
  - MUSCULOSKELETAL PAIN [None]
  - SHOULDER DEFORMITY [None]
  - INJECTION SITE REACTION [None]
  - MYALGIA [None]
  - POSTURE ABNORMAL [None]
